FAERS Safety Report 9073051 (Version 1)
Quarter: 2013Q1

REPORT INFORMATION
  Report Type: Report from Study
  Country: US (occurrence: US)
  Receive Date: 20130129
  Receipt Date: 20130129
  Transmission Date: 20140127
  Serious: No
  Sender: FDA-Public Use
  Company Number: US-ABBOTT-12P-163-0936413-00

PATIENT
  Age: 62 Year
  Sex: Female

DRUGS (4)
  1. HUMIRA 40 MG/0.8 ML PEN [Suspect]
     Indication: RHEUMATOID ARTHRITIS
     Dates: start: 20120201
  2. LEVOTHYROXINE [Concomitant]
     Indication: THYROIDECTOMY
     Dosage: 2.25MCG DAILY
  3. SPIRONOLACTONE [Concomitant]
     Indication: HYPERALDOSTERONISM
  4. INSULIN [Concomitant]
     Indication: TYPE 1 DIABETES MELLITUS

REACTIONS (1)
  - Glycosylated haemoglobin [Not Recovered/Not Resolved]
